FAERS Safety Report 6846521-3 (Version None)
Quarter: 2010Q3

REPORT INFORMATION
  Report Type: 
  Country: None (occurrence: None)
  Receive Date: 20100712
  Receipt Date: 20091106
  Transmission Date: 20110219
  Serious: Yes (Other)
  Sender: FDA-Public Use
  Company Number: 7010190

PATIENT
  Age: 10 Year
  Sex: Female

DRUGS (1)
  1. SAIZEN [Suspect]
     Dosage: 1.4 MG
     Dates: start: 20090914

REACTIONS (3)
  - HOMICIDAL IDEATION [None]
  - POLLAKIURIA [None]
  - THIRST [None]
